FAERS Safety Report 9018624 (Version 1)
Quarter: 2013Q1

REPORT INFORMATION
  Report Type: Spontaneous
  Country: DE (occurrence: DE)
  Receive Date: 20130118
  Receipt Date: 20130118
  Transmission Date: 20140127
  Serious: Yes (Other)
  Sender: FDA-Public Use
  Company Number: DE-PFIZER INC-2013020435

PATIENT
  Age: 75 Year
  Sex: Male

DRUGS (3)
  1. CORDAREX [Suspect]
     Indication: EXTRASYSTOLES
     Dosage: 20 MG, UNK
     Route: 048
     Dates: end: 20130107
  2. TAFIL [Concomitant]
     Dosage: UNK
  3. ATORVASTATIN [Concomitant]
     Dosage: UNK

REACTIONS (2)
  - Hyperthyroidism [Unknown]
  - Asthenia [Unknown]
